FAERS Safety Report 21312451 (Version 1)
Quarter: 2022Q3

REPORT INFORMATION
  Report Type: Spontaneous
  Country: US (occurrence: None)
  Receive Date: 20220909
  Receipt Date: 20220909
  Transmission Date: 20221027
  Serious: No
  Sender: FDA-Public Use
  Company Number: US-ARIS GLOBAL-202206-1140

PATIENT
  Age: 69 Year
  Sex: Female

DRUGS (7)
  1. OXERVATE [Suspect]
     Active Substance: CENEGERMIN-BKBJ
     Indication: Keratitis
     Route: 047
     Dates: start: 201908
  2. OXERVATE [Suspect]
     Active Substance: CENEGERMIN-BKBJ
     Route: 047
     Dates: start: 2020
  3. ERYTHROMYCIN [Concomitant]
     Active Substance: ERYTHROMYCIN
     Dosage: AT BEDTIME
  4. PREDNISOLONE ACETATE [Concomitant]
     Active Substance: PREDNISOLONE ACETATE
  5. MOXIFLOXACIN [Concomitant]
     Active Substance: MOXIFLOXACIN
  6. DIFLUPREDNATE [Concomitant]
     Active Substance: DIFLUPREDNATE
  7. DEVICE [Concomitant]
     Active Substance: DEVICE
     Dosage: SERIAL BANDAGE CONTACT LENS EXCHANGES (ACUVUE OASYS, PLANO SPHERE, BASE CURVE 8.8 MM, DIAMETER 14 MM

REACTIONS (2)
  - Off label use [Unknown]
  - Corneal deposits [Unknown]
